FAERS Safety Report 22625460 (Version 1)
Quarter: 2023Q2

REPORT INFORMATION
  Report Type: Spontaneous
  Country: SI (occurrence: SI)
  Receive Date: 20230621
  Receipt Date: 20230621
  Transmission Date: 20230721
  Serious: Yes (Hospitalization, Other)
  Sender: FDA-Public Use
  Company Number: SI-009507513-2306SVN007664

PATIENT
  Age: 73 Year
  Sex: Male

DRUGS (2)
  1. PEMBROLIZUMAB [Suspect]
     Active Substance: PEMBROLIZUMAB
     Indication: Metastatic malignant melanoma
     Dosage: UNK
     Dates: start: 201806, end: 2021
  2. PEMBROLIZUMAB [Suspect]
     Active Substance: PEMBROLIZUMAB
     Dosage: STANDARD DOSE
     Dates: start: 202203, end: 2022

REACTIONS (14)
  - Autoimmune hypothyroidism [Unknown]
  - Pulmonary fibrosis [Recovering/Resolving]
  - Enterobacter pneumonia [Unknown]
  - Candida pneumonia [Unknown]
  - Pneumonia [Unknown]
  - Stenotrophomonas infection [Unknown]
  - Respiratory failure [Unknown]
  - Hilar lymphadenopathy [Unknown]
  - Hilar lymphadenopathy [Unknown]
  - Paratracheal lymphadenopathy [Unknown]
  - Malignant neoplasm progression [Unknown]
  - Arthralgia [Recovered/Resolved]
  - Myalgia [Recovered/Resolved]
  - Rash [Recovered/Resolved]

NARRATIVE: CASE EVENT DATE: 20180101
